FAERS Safety Report 16823721 (Version 1)
Quarter: 2019Q3

REPORT INFORMATION
  Report Type: Spontaneous
  Country: US (occurrence: US)
  Receive Date: 20190918
  Receipt Date: 20190918
  Transmission Date: 20191005
  Serious: No
  Sender: FDA-Public Use
  Company Number: US-SA-2019SA254296

PATIENT
  Sex: Male

DRUGS (1)
  1. DUPIXENT [Suspect]
     Active Substance: DUPILUMAB
     Dosage: UNK UNK, UNK

REACTIONS (6)
  - Blood immunoglobulin E increased [Unknown]
  - Product use issue [Unknown]
  - Eczema [Recovering/Resolving]
  - Condition aggravated [Unknown]
  - Injection site pain [Unknown]
  - Eosinophilia [Unknown]
